FAERS Safety Report 17920331 (Version 1)
Quarter: 2020Q2

REPORT INFORMATION
  Report Type: Spontaneous
  Country: US (occurrence: US)
  Receive Date: 20200620
  Receipt Date: 20200620
  Transmission Date: 20200714
  Serious: No
  Sender: FDA-Public Use
  Company Number: US-ASTRAZENECA-2020SE78397

PATIENT
  Age: 28467 Day
  Sex: Female
  Weight: 81.6 kg

DRUGS (1)
  1. BYDUREON BCISE [Suspect]
     Active Substance: EXENATIDE
     Route: 065

REACTIONS (3)
  - Incorrect dose administered by device [Unknown]
  - Product dose omission [Unknown]
  - Hunger [Unknown]

NARRATIVE: CASE EVENT DATE: 20200605
